FAERS Safety Report 8936773 (Version 3)
Quarter: 2013Q2

REPORT INFORMATION
  Report Type: Report from Study
  Country: US (occurrence: US)
  Receive Date: 20121130
  Receipt Date: 20130628
  Transmission Date: 20140414
  Serious: Yes (Other)
  Sender: FDA-Public Use
  Company Number: US-US-EMD SERONO, INC.-7174017

PATIENT
  Age: 54 Year
  Sex: Female

DRUGS (2)
  1. REBIF [Suspect]
     Indication: MULTIPLE SCLEROSIS
     Route: 058
     Dates: start: 20120921, end: 201211
  2. REBIF [Suspect]
     Route: 058
     Dates: start: 201211

REACTIONS (2)
  - Optic neuritis [Recovering/Resolving]
  - Injection site pain [Unknown]
